FAERS Safety Report 17975777 (Version 2)
Quarter: 2020Q3

REPORT INFORMATION
  Report Type: Spontaneous
  Country: US (occurrence: US)
  Receive Date: 20200702
  Receipt Date: 20200814
  Transmission Date: 20201103
  Serious: Yes (Other)
  Sender: FDA-Public Use
  Company Number: US-SA-2020SA169412

PATIENT

DRUGS (29)
  1. CARBIDOPA/LEVODOPA [Suspect]
     Active Substance: CARBIDOPA\LEVODOPA
     Dosage: 3 DF
     Route: 065
     Dates: start: 2020, end: 2020
  2. CARBIDOPA/LEVODOPA [Suspect]
     Active Substance: CARBIDOPA\LEVODOPA
     Dosage: CUT HIM BACK; PLAYED WITH DOSES
     Route: 065
     Dates: end: 2020
  3. GOCOVRI [Interacting]
     Active Substance: AMANTADINE
     Dosage: 274 MG, HS
     Route: 048
     Dates: start: 20180202, end: 2018
  4. GOCOVRI [Interacting]
     Active Substance: AMANTADINE
     Dosage: 274 MG, HS
     Route: 048
     Dates: start: 2018
  5. GOCOVRI [Interacting]
     Active Substance: AMANTADINE
     Dosage: 274 MG, HS
     Route: 048
     Dates: start: 2020
  6. QUETIAPINE. [Concomitant]
     Active Substance: QUETIAPINE
     Dosage: UNK
  7. MAGNESIUM [Concomitant]
     Active Substance: MAGNESIUM
     Indication: SUPPLEMENTATION THERAPY
     Dosage: UNK
     Route: 065
  8. OMEGA 3 KRILL OIL [Concomitant]
     Indication: SUPPLEMENTATION THERAPY
  9. FLOMAX [Suspect]
     Active Substance: TAMSULOSIN HYDROCHLORIDE
     Dosage: UNK
     Route: 065
  10. CARBIDOPA/LEVODOPA [Suspect]
     Active Substance: CARBIDOPA\LEVODOPA
     Dosage: DOSAGE UNITS, 4X/DAY
     Route: 065
     Dates: start: 2020
  11. CARBIDOPA/LEVODOPA [Suspect]
     Active Substance: CARBIDOPA\LEVODOPA
     Dosage: 4 DF
     Route: 065
     Dates: start: 2020, end: 2020
  12. GOCOVRI [Interacting]
     Active Substance: AMANTADINE
     Dosage: 274 MG, HS
     Route: 048
     Dates: start: 202004, end: 20200505
  13. GOCOVRI [Interacting]
     Active Substance: AMANTADINE
     Dosage: 137 MG, HS
     Route: 048
     Dates: start: 20200506
  14. ROTIGOTINE [Concomitant]
     Active Substance: ROTIGOTINE
     Dosage: 4 MG/24HR
     Route: 065
  15. OXYCODONE HYDROCHLORIDE. [Interacting]
     Active Substance: OXYCODONE HYDROCHLORIDE
     Dosage: UNK
     Route: 065
     Dates: start: 20180710, end: 2018
  16. GOCOVRI [Interacting]
     Active Substance: AMANTADINE
     Dosage: 137 MG, HS
     Route: 048
     Dates: start: 2018, end: 2018
  17. STOOL SOFTENER (DOCUSATE) [Concomitant]
     Active Substance: DOCUSATE
     Dosage: UNK
     Route: 065
  18. GOCOVRI [Interacting]
     Active Substance: AMANTADINE
     Indication: PARKINSON^S DISEASE
     Dosage: 137 MG, HS
     Route: 048
     Dates: start: 20180126, end: 20180201
  19. GOCOVRI [Interacting]
     Active Substance: AMANTADINE
     Dosage: 137 MG, HS
     Route: 048
     Dates: end: 202004
  20. HYDROCODONE BITARTRATE AND ACETAMINOPHEN [Suspect]
     Active Substance: ACETAMINOPHEN\HYDROCODONE BITARTRATE
     Route: 065
  21. FISH OIL [Concomitant]
     Active Substance: FISH OIL
  22. SELEGILINE [SELEGILINE HYDROCHLORIDE] [Concomitant]
     Route: 065
  23. SIMVASTATIN. [Concomitant]
     Active Substance: SIMVASTATIN
  24. MELATONIN [Concomitant]
     Active Substance: MELATONIN
     Indication: SUPPLEMENTATION THERAPY
     Dosage: UNK
  25. MELOXICAM. [Concomitant]
     Active Substance: MELOXICAM
     Dosage: UNK
     Route: 065
  26. ACETAMINOPHEN. [Concomitant]
     Active Substance: ACETAMINOPHEN
     Dosage: UNK
     Route: 065
  27. CARBIDOPA/LEVODOPA [Suspect]
     Active Substance: CARBIDOPA\LEVODOPA
     Dosage: UNK
     Route: 065
     Dates: start: 20200507
  28. CARBIDOPA/LEVODOPA [Suspect]
     Active Substance: CARBIDOPA\LEVODOPA
     Dosage: 145 MG
     Route: 065
     Dates: end: 2020
  29. VITAMIN D3 [Concomitant]
     Active Substance: CHOLECALCIFEROL
     Indication: SUPPLEMENTATION THERAPY

REACTIONS (14)
  - Parkinson^s disease [Unknown]
  - Irritability [Recovered/Resolved]
  - Anxiety [Unknown]
  - Arthropathy [Unknown]
  - Back pain [Not Recovered/Not Resolved]
  - Nightmare [Not Recovered/Not Resolved]
  - Somnolence [Recovered/Resolved]
  - Confusional state [Unknown]
  - Insomnia [Recovered/Resolved]
  - Therapeutic product effect decreased [Unknown]
  - Drug interaction [Unknown]
  - Hypersomnia [Not Recovered/Not Resolved]
  - Hallucinations, mixed [Recovered/Resolved]
  - Psychotic disorder [Not Recovered/Not Resolved]

NARRATIVE: CASE EVENT DATE: 2018
